FAERS Safety Report 9880426 (Version 2)
Quarter: 2014Q1

REPORT INFORMATION
  Report Type: Report from Study
  Country: AR (occurrence: AR)
  Receive Date: 20140207
  Receipt Date: 20140322
  Transmission Date: 20141002
  Serious: Yes (Hospitalization)
  Sender: FDA-Public Use
  Company Number: AR-ABBVIE-14P-007-1198537-00

PATIENT
  Age: 35 Year
  Sex: Male

DRUGS (1)
  1. ZEMPLAR [Suspect]
     Indication: HYPOPARATHYROIDISM SECONDARY
     Route: 042
     Dates: start: 20131227

REACTIONS (1)
  - Panic attack [Recovered/Resolved]
